FAERS Safety Report 14420160 (Version 1)
Quarter: 2018Q1

REPORT INFORMATION
  Report Type: Spontaneous
  Country: DE (occurrence: DE)
  Receive Date: 20180122
  Receipt Date: 20180122
  Transmission Date: 20180509
  Serious: Yes (Death, Life-Threatening)
  Sender: FDA-Public Use
  Company Number: DE-MYLANLABS-2018M1004663

PATIENT
  Age: 76 Year
  Sex: Male

DRUGS (3)
  1. ACETYLSALICYLIC ACID [Suspect]
     Active Substance: ASPIRIN
     Indication: PROPHYLAXIS
     Dosage: UNK
  2. PLAVIX [Suspect]
     Active Substance: CLOPIDOGREL BISULFATE
     Indication: PROPHYLAXIS
     Dosage: UNK
  3. HEPARIN [Suspect]
     Active Substance: HEPARIN SODIUM
     Indication: SURGERY
     Dosage: UNK

REACTIONS (2)
  - Death [Fatal]
  - Subdural haematoma [Fatal]

NARRATIVE: CASE EVENT DATE: 20161128
